FAERS Safety Report 6963109-4 (Version None)
Quarter: 2010Q3

REPORT INFORMATION
  Report Type: 
  Country: None (occurrence: None)
  Receive Date: 20100902
  Receipt Date: 20100817
  Transmission Date: 20110219
  Serious: Yes (Other)
  Sender: FDA-Public Use
  Company Number: PT-NAPPMUNDI-GBR-2010-0006987

PATIENT
  Age: 49 Year
  Sex: Male

DRUGS (2)
  1. MORPHINE SULFATE [Suspect]
     Indication: NEURALGIA
     Dosage: 1 G, DAILY
  2. LIDOCAINE [Concomitant]
     Indication: PAIN

REACTIONS (7)
  - ABDOMINAL DISTENSION [None]
  - CONSTIPATION [None]
  - DECREASED APPETITE [None]
  - MUSCLE STRAIN [None]
  - NAUSEA [None]
  - QUALITY OF LIFE DECREASED [None]
  - SUICIDAL IDEATION [None]
